FAERS Safety Report 6267160-1 (Version None)
Quarter: 2009Q3

REPORT INFORMATION
  Report Type: 
  Country: None (occurrence: None)
  Receive Date: 20090710
  Receipt Date: 20090629
  Transmission Date: 20100115
  Serious: Yes (Hospitalization)
  Sender: FDA-Public Use
  Company Number: 1-18998534

PATIENT
  Sex: Male
  Weight: 8.1647 kg

DRUGS (1)
  1. CLOBETASOL PROPIONATE [Suspect]
     Indication: DRY SKIN
     Dosage: 2-3 TIMES/DAY, TOPICAL
     Route: 061

REACTIONS (4)
  - CUSHING'S SYNDROME [None]
  - INCORRECT DRUG ADMINISTRATION DURATION [None]
  - OVERWEIGHT [None]
  - RESPIRATORY TRACT INFECTION [None]
